FAERS Safety Report 4634579-1 (Version None)
Quarter: 2005Q3

REPORT INFORMATION
  Report Type: 
  Country: None (occurrence: None)
  Receive Date: 20050411
  Receipt Date: 20050404
  Transmission Date: 20060218
  Serious: Yes (Other)
  Sender: FDA-Public Use
  Company Number: 2005-01-0302

PATIENT
  Age: 63 Year
  Sex: Female
  Weight: 80 kg

DRUGS (9)
  1. VIRAFERONPEG [Suspect]
     Indication: HEPATITIS C
     Dosage: 120MG QW SC SUBCUTANEOUS
     Route: 058
     Dates: start: 20040628, end: 20040903
  2. REBETOL [Suspect]
     Indication: HEPATITIS C
     Dosage: 1G WF PO ORAL
     Route: 048
     Dates: start: 20040628, end: 20040903
  3. SEROPRAM (CITALOPRAM HBR) [Concomitant]
  4. TRANXENE [Concomitant]
  5. TERCIAN [Concomitant]
  6. LEVOTHYROX [Concomitant]
  7. PROPRANOLOL HYDROCHLORIDE [Concomitant]
  8. PANTOPRAZOL [Concomitant]
  9. EVISTA [Concomitant]

REACTIONS (2)
  - DEMYELINATION [None]
  - POLYNEUROPATHY [None]
